FAERS Safety Report 18418746 (Version 3)
Quarter: 2020Q4

REPORT INFORMATION
  Report Type: Spontaneous
  Country: US (occurrence: US)
  Receive Date: 20201023
  Receipt Date: 20201117
  Transmission Date: 20210114
  Serious: No
  Sender: FDA-Public Use
  Company Number: US-SA-2020SA295235

PATIENT

DRUGS (1)
  1. TOUJEO [Suspect]
     Active Substance: INSULIN GLARGINE
     Indication: TYPE 2 DIABETES MELLITUS
     Dosage: 145 IU, QD
     Route: 065

REACTIONS (4)
  - Eye infection [Unknown]
  - Blood glucose increased [Recovering/Resolving]
  - Nasopharyngitis [Unknown]
  - Product quality issue [Recovering/Resolving]
